FAERS Safety Report 24982760 (Version 2)
Quarter: 2025Q2

REPORT INFORMATION
  Report Type: Spontaneous
  Country: US (occurrence: US)
  Receive Date: 20250218
  Receipt Date: 20250508
  Transmission Date: 20250716
  Serious: No
  Sender: MERZ
  Company Number: US-Merz Pharmaceuticals GmbH-2025020000101

PATIENT

DRUGS (13)
  1. XEOMIN [Suspect]
     Active Substance: INCOBOTULINUMTOXINA
     Indication: Torticollis
     Dosage: 700 INTERNATIONAL UNIT
     Route: 030
     Dates: start: 202310, end: 202310
  2. XEOMIN [Suspect]
     Active Substance: INCOBOTULINUMTOXINA
     Dates: start: 2013
  3. XEOMIN [Suspect]
     Active Substance: INCOBOTULINUMTOXINA
     Dosage: 700 INTERNATIONAL UNIT
     Dates: start: 20240109, end: 20240109
  4. XEOMIN [Suspect]
     Active Substance: INCOBOTULINUMTOXINA
     Dosage: 700 INTERNATIONAL UNIT
     Dates: start: 20240319, end: 20240319
  5. XEOMIN [Suspect]
     Active Substance: INCOBOTULINUMTOXINA
     Dosage: 700 INTERNATIONAL UNIT
     Dates: start: 20240604, end: 20240604
  6. XEOMIN [Suspect]
     Active Substance: INCOBOTULINUMTOXINA
     Dosage: 700 INTERNATIONAL UNIT
     Dates: start: 20240820, end: 20240820
  7. XEOMIN [Suspect]
     Active Substance: INCOBOTULINUMTOXINA
     Dosage: 700 INTERNATIONAL UNIT
     Dates: start: 20241119, end: 20241119
  8. XEOMIN [Suspect]
     Active Substance: INCOBOTULINUMTOXINA
     Dosage: 700 INTERNATIONAL UNIT
     Route: 030
     Dates: start: 20250326, end: 20250326
  9. BOTULINUM TOXIN NOS [Concomitant]
     Active Substance: BOTULINUM TOXIN NOS
     Indication: Torticollis
     Dates: start: 1995
  10. KLONOPIN [Concomitant]
     Active Substance: CLONAZEPAM
     Indication: Muscle spasms
  11. KLONOPIN [Concomitant]
     Active Substance: CLONAZEPAM
     Dosage: 1 MILLIGRAM
     Route: 048
     Dates: end: 20231212
  12. KLONOPIN [Concomitant]
     Active Substance: CLONAZEPAM
     Dosage: 1 MILLIGRAM
     Route: 048
     Dates: start: 20231212
  13. ZOFRAN [Concomitant]
     Active Substance: ONDANSETRON HYDROCHLORIDE

REACTIONS (2)
  - Overdose [Unknown]
  - No adverse event [Unknown]

NARRATIVE: CASE EVENT DATE: 20231001
